FAERS Safety Report 17541638 (Version 5)
Quarter: 2020Q2

REPORT INFORMATION
  Report Type: Spontaneous
  Country: US (occurrence: US)
  Receive Date: 20200313
  Receipt Date: 20200504
  Transmission Date: 20200713
  Serious: Yes (Disabling)
  Sender: FDA-Public Use
  Company Number: US-ELI_LILLY_AND_COMPANY-US202003005761

PATIENT
  Sex: Female

DRUGS (9)
  1. TOPAMAX [Concomitant]
     Active Substance: TOPIRAMATE
     Indication: MIGRAINE
     Route: 065
  2. EMGALITY [Suspect]
     Active Substance: GALCANEZUMAB-GNLM
     Indication: MIGRAINE
     Dosage: 1 DOSAGE FORM, MONTHLY (1/M)
     Route: 065
  3. AMITRIPTYLINE [Concomitant]
     Active Substance: AMITRIPTYLINE
     Indication: MIGRAINE
     Route: 065
  4. REYVOW [Suspect]
     Active Substance: LASMIDITAN
     Indication: HEADACHE
     Dosage: UNK, DAILY
     Route: 048
  5. BOTOX [Concomitant]
     Active Substance: ONABOTULINUMTOXINA
     Indication: MIGRAINE
     Route: 065
  6. EMGALITY [Suspect]
     Active Substance: GALCANEZUMAB-GNLM
     Indication: CLUSTER HEADACHE
     Dosage: 300 MG, UNKNOWN
     Route: 058
  7. ZOLOFT [Concomitant]
     Active Substance: SERTRALINE HYDROCHLORIDE
     Indication: MIGRAINE
     Route: 065
  8. FIORICET [Concomitant]
     Active Substance: ACETAMINOPHEN\BUTALBITAL\CAFFEINE
     Indication: MIGRAINE
     Route: 065
  9. ZOMIG [Concomitant]
     Active Substance: ZOLMITRIPTAN
     Indication: MIGRAINE
     Route: 045

REACTIONS (9)
  - Migraine [Recovered/Resolved]
  - Weight decreased [Unknown]
  - Cluster headache [Recovering/Resolving]
  - Impaired gastric emptying [Unknown]
  - Fatigue [Not Recovered/Not Resolved]
  - Injection site pain [Not Recovered/Not Resolved]
  - Headache [Not Recovered/Not Resolved]
  - Nausea [Unknown]
  - Hypersomnia [Not Recovered/Not Resolved]
